FAERS Safety Report 24774442 (Version 4)
Quarter: 2025Q1

REPORT INFORMATION
  Report Type: Spontaneous
  Country: US (occurrence: US)
  Receive Date: 20241225
  Receipt Date: 20250209
  Transmission Date: 20250409
  Serious: No
  Sender: SANDOZ
  Company Number: US-SANDOZ-SDZ2024US104825

PATIENT
  Age: 74 Year
  Sex: Male

DRUGS (1)
  1. ADALIMUMAB [Suspect]
     Active Substance: ADALIMUMAB
     Indication: Product used for unknown indication
     Route: 058

REACTIONS (6)
  - Sciatica [Unknown]
  - Disease recurrence [Unknown]
  - Arthritis [Unknown]
  - Device defective [Unknown]
  - Device use error [Unknown]
  - Incorrect dose administered by device [Unknown]
